FAERS Safety Report 5612259-3 (Version None)
Quarter: 2008Q1

REPORT INFORMATION
  Report Type: 
  Country: None (occurrence: None)
  Receive Date: 20080128
  Receipt Date: 20080124
  Transmission Date: 20080703
  Serious: Yes (Other)
  Sender: FDA-Public Use
  Company Number: THQ2008A00272

PATIENT
  Age: 53 Year
  Sex: Male

DRUGS (1)
  1. OGASTO                             (LANSOPRAZOLE) [Suspect]
     Indication: GASTRIC ULCER
     Dosage: 30 MG
     Route: 048
     Dates: start: 20071204, end: 20071204

REACTIONS (6)
  - CONVULSION [None]
  - HYPOTENSION [None]
  - INCONTINENCE [None]
  - PRURITUS GENERALISED [None]
  - SYNCOPE [None]
  - VISUAL DISTURBANCE [None]
